FAERS Safety Report 13006273 (Version 1)
Quarter: 2016Q4

REPORT INFORMATION
  Report Type: Spontaneous
  Country: US (occurrence: US)
  Receive Date: 20161206
  Receipt Date: 20161206
  Transmission Date: 20170207
  Serious: No
  Sender: FDA-Public Use
  Company Number: None

PATIENT
  Age: 59 Year
  Sex: Female

DRUGS (1)
  1. AMPYRA [Suspect]
     Active Substance: DALFAMPRIDINE
     Indication: MULTIPLE SCLEROSIS
     Route: 048
     Dates: start: 20120422

REACTIONS (4)
  - Blood pressure decreased [None]
  - Urinary tract infection [None]
  - Pollakiuria [None]
  - Haematuria [None]

NARRATIVE: CASE EVENT DATE: 20161005
